FAERS Safety Report 11826448 (Version 1)
Quarter: 2015Q4

REPORT INFORMATION
  Report Type: Spontaneous
  Country: GB (occurrence: GB)
  Receive Date: 20151211
  Receipt Date: 20151211
  Transmission Date: 20160305
  Serious: Yes (Death, Other)
  Sender: FDA-Public Use
  Company Number: GB-GLAXOSMITHKLINE-GB2015174922

PATIENT
  Age: 64 Year
  Sex: Female
  Weight: 56.4 kg

DRUGS (4)
  1. RETIGABINE [Suspect]
     Active Substance: EZOGABINE
     Indication: PARTIAL SEIZURES WITH SECONDARY GENERALISATION
     Dosage: 50 MG, TID
     Route: 048
     Dates: start: 20111109, end: 20111123
  2. LAMICTAL [Concomitant]
     Active Substance: LAMOTRIGINE
     Indication: PARTIAL SEIZURES
     Dosage: 150MG IN THE MORNING, 200MG AT NIGHT. ONGOING.
     Route: 048
     Dates: start: 20070509
  3. ESLICARBAZEPINE [Concomitant]
     Active Substance: ESLICARBAZEPINE
     Indication: PARTIAL SEIZURES
     Dosage: AT NIGHT. IN PROCESS OF WITHDRAWING
     Route: 048
     Dates: start: 20100714
  4. RETIGABINE [Suspect]
     Active Substance: EZOGABINE
     Dosage: 100 MG, TID
     Route: 048
     Dates: start: 20111124

REACTIONS (2)
  - Epilepsy [Not Recovered/Not Resolved]
  - Status epilepticus [Fatal]

NARRATIVE: CASE EVENT DATE: 20111124
